FAERS Safety Report 15015210 (Version 1)
Quarter: 2018Q2

REPORT INFORMATION
  Report Type: Spontaneous
  Country: US (occurrence: US)
  Receive Date: 20180530
  Receipt Date: 20180530
  Transmission Date: 20180711
  Serious: Yes (Other)
  Sender: FDA-Public Use
  Company Number: None

PATIENT
  Age: 43 Year
  Sex: Female
  Weight: 70.2 kg

DRUGS (4)
  1. TAYTULLA [Suspect]
     Active Substance: ETHINYL ESTRADIOL\NORETHINDRONE ACETATE
     Indication: HAEMORRHAGE
     Route: 048
     Dates: start: 20170911, end: 20171212
  2. KAITLIB FE [Suspect]
     Active Substance: ETHINYL ESTRADIOL\NORETHINDRONE
     Indication: HAEMORRHAGE
     Route: 048
     Dates: start: 20170306, end: 20170911
  3. TAYTULLA [Suspect]
     Active Substance: ETHINYL ESTRADIOL\NORETHINDRONE ACETATE
     Indication: DYSMENORRHOEA
     Route: 048
     Dates: start: 20170911, end: 20171212
  4. TAYTULLA [Suspect]
     Active Substance: ETHINYL ESTRADIOL\NORETHINDRONE ACETATE
     Indication: UTERINE HAEMORRHAGE
     Route: 048
     Dates: start: 20170911, end: 20171212

REACTIONS (5)
  - Crying [None]
  - Mood swings [None]
  - Panic attack [None]
  - Uterine haemorrhage [None]
  - Product substitution issue [None]

NARRATIVE: CASE EVENT DATE: 20170306
